FAERS Safety Report 9614621 (Version 1)
Quarter: 2013Q4

REPORT INFORMATION
  Report Type: Spontaneous
  Country: US (occurrence: None)
  Receive Date: 20131009
  Receipt Date: 20131009
  Transmission Date: 20140711
  Serious: Yes (Hospitalization)
  Sender: FDA-Public Use
  Company Number: None

PATIENT
  Age: 49 Year
  Sex: Male

DRUGS (1)
  1. LISINOPRIL [Suspect]
     Indication: HYPERTENSION
     Dosage: LISINOPRIL 10MG DAILY BY MOUTH
     Route: 048
     Dates: start: 20130822

REACTIONS (5)
  - Anaphylactic shock [None]
  - Dizziness [None]
  - Feeling abnormal [None]
  - Product substitution issue [None]
  - Blood pressure inadequately controlled [None]
